FAERS Safety Report 20463123 (Version 1)
Quarter: 2022Q1

REPORT INFORMATION
  Report Type: Spontaneous
  Country: US (occurrence: US)
  Receive Date: 20220211
  Receipt Date: 20220211
  Transmission Date: 20220424
  Serious: No
  Sender: FDA-Public Use
  Company Number: US-PERRIGO-21US032037

PATIENT
  Age: 64 Year
  Sex: Female
  Weight: 70.295 kg

DRUGS (2)
  1. NAPROXEN SODIUM [Suspect]
     Active Substance: NAPROXEN SODIUM
     Indication: Back pain
     Dosage: 220 MG TO 440 MG, BID
     Route: 048
     Dates: start: 201906
  2. NAPROXEN SODIUM [Suspect]
     Active Substance: NAPROXEN SODIUM
     Indication: Pain
     Dosage: 220 MG TO 440 MG, BID
     Route: 048
     Dates: start: 20211204, end: 20211205

REACTIONS (2)
  - Therapeutic product effect decreased [Unknown]
  - Expired product administered [Recovered/Resolved]

NARRATIVE: CASE EVENT DATE: 20200501
